FAERS Safety Report 8984286 (Version 3)
Quarter: 2013Q1

REPORT INFORMATION
  Report Type: Report from Study
  Country: US (occurrence: US)
  Receive Date: 20121226
  Receipt Date: 20130117
  Transmission Date: 20140127
  Serious: Yes (Hospitalization, Other)
  Sender: FDA-Public Use
  Company Number: US-BAYER-2012-132404

PATIENT
  Age: 57 Year
  Sex: Female

DRUGS (2)
  1. STIVARGA [Suspect]
     Indication: COLON CANCER
     Dosage: 160 MG, QD
     Route: 048
     Dates: start: 20121105
  2. STIVARGA [Suspect]
     Indication: COLON CANCER
     Dosage: DAILY DOSE 80 MG
     Route: 048
     Dates: start: 20121105, end: 201212

REACTIONS (9)
  - Aphagia [None]
  - Hospitalisation [None]
  - Nausea [Recovered/Resolved]
  - Vomiting [Recovered/Resolved]
  - Intestinal obstruction [Recovered/Resolved]
  - Skin exfoliation [Recovered/Resolved]
  - Ageusia [Recovered/Resolved]
  - Pain in extremity [None]
  - Oral pain [Recovered/Resolved]
